FAERS Safety Report 5490354-X (Version None)
Quarter: 2007Q4

REPORT INFORMATION
  Report Type: 
  Country: None (occurrence: None)
  Receive Date: 20071019
  Receipt Date: 20071009
  Transmission Date: 20080405
  Serious: Yes (Life-Threatening, Hospitalization)
  Sender: FDA-Public Use
  Company Number: AR-NOVOPROD-265525

PATIENT
  Age: 3 Day
  Sex: Female
  Weight: 3 kg

DRUGS (8)
  1. NOVOSEVEN [Suspect]
     Indication: HAEMORRHAGE
     Dosage: 90 UG/KG/DOSE
     Route: 042
     Dates: start: 20060126, end: 20060126
  2. EPINEPHRINE [Concomitant]
  3. FENTANYL [Concomitant]
  4. PANCURONIUM [Concomitant]
  5. MEROPENEM [Concomitant]
  6. VANCOMYCIN [Concomitant]
  7. FUROSEMIDE [Concomitant]
  8. DESMOPRESSIN ACETATE [Concomitant]

REACTIONS (1)
  - ATRIAL THROMBOSIS [None]
